FAERS Safety Report 8360296-0 (Version None)
Quarter: 2012Q2

REPORT INFORMATION
  Report Type: 
  Country: None (occurrence: None)
  Receive Date: 20120515
  Receipt Date: 20120508
  Transmission Date: 20120825
  Serious: Yes (Other)
  Sender: FDA-Public Use
  Company Number: FI-TEVA-337640ISR

PATIENT
  Age: 82 Year
  Sex: Male

DRUGS (3)
  1. NORVASC [Concomitant]
     Route: 048
  2. TAMSULOSIN HCL [Suspect]
     Dosage: .4 MILLIGRAM;
     Route: 048
     Dates: start: 20110101
  3. LINATIL SANDOZ [Concomitant]
     Route: 048

REACTIONS (2)
  - DEAFNESS UNILATERAL [None]
  - VERTIGO [None]
